FAERS Safety Report 5191681-6 (Version None)
Quarter: 2006Q4

REPORT INFORMATION
  Report Type: 
  Country: None (occurrence: None)
  Receive Date: 20061219
  Receipt Date: 20061127
  Transmission Date: 20070319
  Serious: Yes (Hospitalization, Other)
  Sender: FDA-Public Use
  Company Number: 2006146734

PATIENT
  Sex: Female

DRUGS (3)
  1. CELEBREX [Suspect]
     Dates: start: 20031001
  2. BEXTRA [Suspect]
     Dates: start: 20040301
  3. VIOXX [Suspect]
     Dates: start: 20000601, end: 20031001

REACTIONS (2)
  - INJURY [None]
  - TRANSIENT ISCHAEMIC ATTACK [None]
